FAERS Safety Report 14163212 (Version 1)
Quarter: 2017Q4

REPORT INFORMATION
  Report Type: Spontaneous
  Country: US (occurrence: US)
  Receive Date: 20171106
  Receipt Date: 20171106
  Transmission Date: 20180321
  Serious: Yes (Hospitalization)
  Sender: FDA-Public Use
  Company Number: US-MYLANLABS-2017M1068711

PATIENT
  Age: 16 Year
  Sex: Female

DRUGS (1)
  1. ETHINYLESTRADIOL/NORGESTIMATE [Suspect]
     Active Substance: ETHINYL ESTRADIOL\NORGESTIMATE
     Indication: ACNE
     Route: 048

REACTIONS (4)
  - Pulmonary embolism [Unknown]
  - Presyncope [None]
  - Vena cava thrombosis [Recovered/Resolved]
  - Pulmonary infarction [Unknown]
